FAERS Safety Report 4866279-7 (Version None)
Quarter: 2005Q4

REPORT INFORMATION
  Report Type: 
  Country: None (occurrence: None)
  Receive Date: 20051221
  Receipt Date: 20051213
  Transmission Date: 20060501
  Serious: Yes (Other)
  Sender: FDA-Public Use
  Company Number: 2005-11-1749

PATIENT
  Age: 84 Year
  Sex: Female
  Weight: 65.7716 kg

DRUGS (6)
  1. PROVENTIL [Suspect]
     Indication: EMPHYSEMA
     Dosage: 4 PUFFS BID ORAL AER INH
     Route: 055
     Dates: start: 19900101
  2. VANCERIL [Suspect]
     Indication: EMPHYSEMA
     Dosage: ORAL AER INH
     Route: 055
  3. FLOVENT [Concomitant]
     Indication: EMPHYSEMA
     Dosage: ORAL AER INH
     Route: 055
  4. LIPITOR [Concomitant]
  5. NEXIUM [Concomitant]
  6. PLAVIX [Concomitant]

REACTIONS (3)
  - DRUG INEFFECTIVE [None]
  - DYSPNOEA [None]
  - FEELING ABNORMAL [None]
